FAERS Safety Report 12202378 (Version 1)
Quarter: 2016Q1

REPORT INFORMATION
  Report Type: Spontaneous
  Country: US (occurrence: US)
  Receive Date: 20160322
  Receipt Date: 20160322
  Transmission Date: 20160526
  Serious: No
  Sender: FDA-Public Use
  Company Number: US-BAYER-2016-044703

PATIENT
  Age: 62 Year
  Sex: Female
  Weight: 72.56 kg

DRUGS (5)
  1. TRI-STATIN II [GRAMICIDIN,NEOMYCIN SULFATE,NYSTATIN,TRIAMCINOLONE [Concomitant]
  2. PAROXETINE [Concomitant]
     Active Substance: PAROXETINE\PAROXETINE HYDROCHLORIDE
  3. MIRALAX [Suspect]
     Active Substance: POLYETHYLENE GLYCOL 3350
     Indication: COLONOSCOPY
     Dosage: UNK UNK, ONCE
     Route: 048
     Dates: start: 20160303, end: 20160303
  4. LISINOPRIL. [Concomitant]
     Active Substance: LISINOPRIL
  5. OMEPRAZOLE. [Concomitant]
     Active Substance: OMEPRAZOLE

REACTIONS (5)
  - Mouth swelling [None]
  - Product use issue [None]
  - Oesophageal discomfort [None]
  - Dyspepsia [None]
  - Oropharyngeal spasm [None]
